FAERS Safety Report 7397066-6 (Version None)
Quarter: 2011Q2

REPORT INFORMATION
  Report Type: 
  Country: None (occurrence: None)
  Receive Date: 20110406
  Receipt Date: 20110329
  Transmission Date: 20111010
  Serious: Yes (Hospitalization)
  Sender: FDA-Public Use
  Company Number: A0773152A

PATIENT
  Age: 79 Year
  Sex: Male
  Weight: 88.6 kg

DRUGS (12)
  1. AVANDIA [Suspect]
     Indication: DIABETES MELLITUS
     Dosage: 4MG PER DAY
     Route: 048
     Dates: end: 20070709
  2. GLIPIZIDE [Concomitant]
  3. TRICOR [Concomitant]
  4. TIGAN [Concomitant]
  5. NEURONTIN [Concomitant]
  6. ZETIA [Concomitant]
  7. TICLOPIDINE HCL [Concomitant]
  8. LASIX [Concomitant]
  9. GLUCOPHAGE [Concomitant]
  10. ZOCOR [Concomitant]
  11. PROTONIX [Concomitant]
  12. TENORMIN [Concomitant]

REACTIONS (2)
  - MYOCARDIAL INFARCTION [None]
  - CORONARY ARTERY DISEASE [None]
